FAERS Safety Report 6556566-9 (Version None)
Quarter: 2010Q1

REPORT INFORMATION
  Report Type: 
  Country: None (occurrence: None)
  Receive Date: 20100128
  Receipt Date: 20100121
  Transmission Date: 20100710
  Serious: Yes (Hospitalization)
  Sender: FDA-Public Use
  Company Number: US-EISAI INC.-E3810-03465-SPO-US

PATIENT
  Sex: Female
  Weight: 83 kg

DRUGS (2)
  1. ACIPHEX [Suspect]
     Route: 048
     Dates: start: 20090101, end: 20090921
  2. GLYBORIDE [Concomitant]
     Route: 048

REACTIONS (1)
  - DIVERTICULITIS [None]
